FAERS Safety Report 9315040 (Version 2)
Quarter: 2013Q3

REPORT INFORMATION
  Report Type: Spontaneous
  Country: US (occurrence: US)
  Receive Date: 20130529
  Receipt Date: 20130805
  Transmission Date: 20140515
  Serious: Yes (Hospitalization, Other)
  Sender: FDA-Public Use
  Company Number: US-UCBSA-086651

PATIENT
  Age: 61 Year
  Sex: Female
  Weight: 66.2 kg

DRUGS (5)
  1. KEPPRA [Suspect]
     Indication: CONVULSION
  2. KEPPRA [Suspect]
     Indication: CONVULSION
     Dosage: INCREASED DOSE
     Dates: start: 20130326
  3. KEPPRA [Suspect]
     Indication: CONVULSION
     Dosage: DECREASED DOSE
  4. SPRYCEL/PLACEBO [Suspect]
     Indication: GLIOBLASTOMA MULTIFORME
     Dosage: TOTAL DOSE OF 2100MG
     Route: 048
     Dates: start: 20130325, end: 20130404
  5. BEVACIZUMAB [Suspect]
     Indication: GLIOBLASTOMA MULTIFORME
     Dosage: TOTAL DOSE OF 663MG
     Route: 042
     Dates: start: 20130325

REACTIONS (3)
  - Muscular weakness [Recovering/Resolving]
  - Aphasia [Recovering/Resolving]
  - Convulsion [Recovering/Resolving]
